FAERS Safety Report 5020640-9 (Version None)
Quarter: 2006Q2

REPORT INFORMATION
  Report Type: 
  Country: None (occurrence: None)
  Receive Date: 20060602
  Receipt Date: 20060518
  Transmission Date: 20061013
  Serious: Yes (Hospitalization)
  Sender: FDA-Public Use
  Company Number: 430024M06USA

PATIENT
  Age: 53 Year
  Sex: Female

DRUGS (15)
  1. NOVANTRONE [Suspect]
     Indication: ACUTE MYELOID LEUKAEMIA
  2. ETOPOSIDE [Suspect]
  3. CYTARABINE [Suspect]
  4. PROAMATINE [Concomitant]
  5. FLORINEF [Concomitant]
  6. WELLBUTRN (BUPROPION HYDROCHLORIDE) [Concomitant]
  7. ZOFRAN [Concomitant]
  8. SINGULAIR [Concomitant]
  9. ATROVENT [Concomitant]
  10. LEXAPRO [Concomitant]
  11. LEVOXYL [Concomitant]
  12. NEXIUM [Concomitant]
  13. LEVAQUIN [Concomitant]
  14. COMPAZINE [Concomitant]
  15. ADVAIR (SERETIDE) [Concomitant]

REACTIONS (6)
  - CARDIAC FAILURE CONGESTIVE [None]
  - CARDIOMEGALY [None]
  - DYSPNOEA AT REST [None]
  - DYSPNOEA EXERTIONAL [None]
  - TRANSAMINASES INCREASED [None]
  - VENTRICULAR DYSFUNCTION [None]
